FAERS Safety Report 15035101 (Version 1)
Quarter: 2018Q2

REPORT INFORMATION
  Report Type: Spontaneous
  Country: US (occurrence: US)
  Receive Date: 20180620
  Receipt Date: 20180620
  Transmission Date: 20180711
  Serious: No
  Sender: FDA-Public Use
  Company Number: US-PFIZER INC-2018248366

PATIENT
  Age: 84 Year
  Sex: Female
  Weight: 72 kg

DRUGS (1)
  1. FLECTOR [Suspect]
     Active Substance: DICLOFENAC EPOLAMINE
     Indication: ARTHRALGIA
     Dosage: 2X/DAY (1.3 PATCH)
     Route: 062
     Dates: start: 20180615

REACTIONS (2)
  - Product adhesion issue [Unknown]
  - Drug ineffective [Unknown]
